FAERS Safety Report 23322951 (Version 1)
Quarter: 2023Q4

REPORT INFORMATION
  Report Type: Spontaneous
  Country: US (occurrence: None)
  Receive Date: 20231220
  Receipt Date: 20231220
  Transmission Date: 20240109
  Serious: No
  Sender: FDA-Public Use
  Company Number: US-ROCHE-3223933

PATIENT
  Sex: Male
  Weight: 56.75 kg

DRUGS (3)
  1. RITUXAN [Suspect]
     Active Substance: RITUXIMAB
     Indication: Multiple sclerosis
     Dosage: YES
     Route: 041
     Dates: start: 2020
  2. VITAMIN D [Concomitant]
     Active Substance: VITAMIN D NOS
     Dosage: YES
     Route: 048
  3. VITAMIN B [Concomitant]
     Active Substance: VITAMIN B
     Indication: Multiple sclerosis
     Dosage: YEA
     Route: 048

REACTIONS (2)
  - Off label use [Unknown]
  - No adverse event [Unknown]

NARRATIVE: CASE EVENT DATE: 20200101
